FAERS Safety Report 7561408-9 (Version None)
Quarter: 2011Q2

REPORT INFORMATION
  Report Type: 
  Country: None (occurrence: None)
  Receive Date: 20110621
  Receipt Date: 20100602
  Transmission Date: 20111010
  Serious: No
  Sender: FDA-Public Use
  Company Number: US-ASTRAZENECA-2010SE25755

PATIENT
  Age: 85 Year
  Sex: Female
  Weight: 45.4 kg

DRUGS (2)
  1. PULMICORT FLEXHALER [Suspect]
     Indication: CHRONIC OBSTRUCTIVE PULMONARY DISEASE
     Dosage: 360 MCG, 2 PUFFS 2 TIMES A DAY
     Route: 055
     Dates: start: 20100526, end: 20100528
  2. PULMICORT FLEXHALER [Suspect]
     Dosage: 180 MCG,BID
     Route: 055
     Dates: start: 20100602

REACTIONS (1)
  - TREMOR [None]
